FAERS Safety Report 8903144 (Version 1)
Quarter: 2012Q4

REPORT INFORMATION
  Report Type: 
  Country: GB (occurrence: GB)
  Receive Date: 20121112
  Receipt Date: 20121112
  Transmission Date: 20130627
  Serious: Yes (Other)
  Sender: FDA-Public Use
  Company Number: GB-ACCORD-015207

PATIENT
  Age: 63 Year
  Sex: Female

DRUGS (3)
  1. SIMVASTATIN [Suspect]
     Indication: DRUG USE FOR UNKNOWN INDICATION
     Route: 048
     Dates: start: 2012, end: 20121016
  2. PARACETAMOL [Concomitant]
  3. FLUCLOXACILLIN [Concomitant]

REACTIONS (3)
  - Dyskinesia [Recovered/Resolved with Sequelae]
  - Back pain [Recovered/Resolved with Sequelae]
  - Rash [Recovered/Resolved with Sequelae]
